FAERS Safety Report 17676947 (Version 3)
Quarter: 2020Q4

REPORT INFORMATION
  Report Type: Report from Study
  Country: GB (occurrence: GB)
  Receive Date: 20200416
  Receipt Date: 20201023
  Transmission Date: 20210113
  Serious: Yes (Hospitalization, Other)
  Sender: FDA-Public Use
  Company Number: GB-MYLANLABS-2020M1038382

PATIENT
  Age: 59 Year
  Sex: Female

DRUGS (51)
  1. DIPYRIDAMOLE. [Concomitant]
     Active Substance: DIPYRIDAMOLE
     Dosage: 25 MILLIGRAM(0.5 DAY)
     Route: 048
     Dates: start: 2001
  2. GRANISETRON                        /01178102/ [Concomitant]
     Active Substance: GRANISETRON
     Dosage: 1 MILLIGRAM
     Route: 042
     Dates: start: 201504
  3. CALCIUM CARBONATE. [Concomitant]
     Active Substance: CALCIUM CARBONATE
     Dosage: TO MAINTAIN CALCIUM LEVELS
     Route: 048
     Dates: start: 20170121
  4. HYOSCINE HYDROBROMIDE [Concomitant]
     Active Substance: SCOPOLAMINE HYDROBROMIDE
     Dosage: PATCH
     Route: 062
     Dates: start: 20170320, end: 201704
  5. VASELINE                           /01007601/ [Concomitant]
     Dosage: UNK
     Route: 061
     Dates: start: 201511
  6. TRASTUZUMAB. [Suspect]
     Active Substance: TRASTUZUMAB
     Dosage: UNK UNK, Q3W
     Route: 042
     Dates: start: 20170228
  7. DEXAMETHASONE. [Concomitant]
     Active Substance: DEXAMETHASONE
     Dosage: 3.3 MILLIGRAM, Q3W
     Route: 042
     Dates: start: 20150812, end: 20150818
  8. DEXAMETHASONE. [Concomitant]
     Active Substance: DEXAMETHASONE
     Dosage: 4 MILLIGRAM, QD
     Route: 048
     Dates: start: 20170114, end: 20170120
  9. DALTEPARIN [Concomitant]
     Active Substance: DALTEPARIN
     Dosage: 5000 U
     Route: 058
     Dates: start: 20170119
  10. PARACETAMOL [Concomitant]
     Active Substance: ACETAMINOPHEN
     Dosage: 1 GRAM, Q3W
     Route: 048
     Dates: start: 20151029
  11. DEXAMETHASONE. [Concomitant]
     Active Substance: DEXAMETHASONE
     Dosage: 6.6 MILLIGRAM, Q3W
     Route: 042
     Dates: start: 201504, end: 20150707
  12. CHLORPHENIRAMINE                   /00072501/ [Concomitant]
     Active Substance: CHLORPHENIRAMINE
     Dosage: 10 MILLIGRAM, Q3W
     Route: 042
     Dates: start: 20151029
  13. DOMPERIDONE [Concomitant]
     Active Substance: DOMPERIDONE
     Dosage: 30 MILLIGRAM
     Route: 048
     Dates: start: 201504
  14. LEVOMEPROMAZINE [Concomitant]
     Active Substance: LEVOMEPROMAZINE
     Dosage: 6.25 MILLIGRAM, QD
     Route: 048
     Dates: start: 20170320
  15. PERTUZUMAB. [Suspect]
     Active Substance: PERTUZUMAB
     Indication: HER2 POSITIVE BREAST CANCER
     Dosage: 420 MILLIGRAM, Q3W
     Route: 042
     Dates: start: 20150326
  16. GRANISETRON                        /01178102/ [Concomitant]
     Active Substance: GRANISETRON
     Dosage: 1 MILLIGRAM, Q3W
     Route: 042
     Dates: start: 20151029
  17. LOPERAMIDE [Concomitant]
     Active Substance: LOPERAMIDE
     Indication: PROPHYLAXIS
     Dosage: 2 MILLIGRAM, PRN(AS REQUIRED)
     Route: 048
     Dates: start: 201504, end: 20150818
  18. DOMPERIDONE [Concomitant]
     Active Substance: DOMPERIDONE
     Dosage: 10 MILLIGRAM
     Route: 048
     Dates: start: 20150326, end: 20150728
  19. NOZINAN                            /00038601/ [Concomitant]
     Active Substance: LEVOMEPROMAZINE
     Indication: VOMITING
  20. NORMAL SALINE [Concomitant]
     Active Substance: SODIUM CHLORIDE
     Dosage: NASOGASTRIC SOLUTION
     Dates: start: 20170119, end: 20170320
  21. HYOSCINE HYDROBROMIDE [Concomitant]
     Active Substance: SCOPOLAMINE HYDROBROMIDE
     Dosage: PATCH
     Route: 062
     Dates: start: 20170320, end: 201704
  22. PARACETAMOL [Concomitant]
     Active Substance: ACETAMINOPHEN
     Dosage: SOLUTION
     Route: 042
     Dates: start: 20170114, end: 20170114
  23. METOCLOPRAMIDE. [Concomitant]
     Active Substance: METOCLOPRAMIDE
     Dosage: 7 DAYS POST CHEMO
     Route: 048
     Dates: start: 20151029
  24. EXEMESTANE. [Suspect]
     Active Substance: EXEMESTANE
     Indication: BREAST CANCER METASTATIC
     Dosage: 25 MILLIGRAM, QD
     Route: 048
     Dates: start: 201605
  25. PERTUZUMAB. [Suspect]
     Active Substance: PERTUZUMAB
     Indication: BREAST CANCER METASTATIC
     Dosage: 840 MILLIGRAM, Q3W
     Route: 042
     Dates: start: 20151029
  26. DEXAMETHASONE. [Concomitant]
     Active Substance: DEXAMETHASONE
     Dosage: 4 MILLIGRAM, QD
     Route: 048
     Dates: start: 201606, end: 20160918
  27. DEXAMETHASONE. [Concomitant]
     Active Substance: DEXAMETHASONE
     Dosage: 4 MILLIGRAM, QD
     Route: 048
     Dates: start: 20160320, end: 20160322
  28. ONDANSETRON [Concomitant]
     Active Substance: ONDANSETRON
     Dosage: TWICE DAILY FOR 1 DAY POST CHEMO
     Route: 048
     Dates: start: 20150326, end: 20150707
  29. ONDANSETRON [Concomitant]
     Active Substance: ONDANSETRON
     Dosage: TWICE DAILY FOR 1 DAY POST CHEMO
     Route: 048
     Dates: start: 20170119, end: 20170320
  30. CHLORPHENIRAMINE                   /00072501/ [Concomitant]
     Active Substance: CHLORPHENIRAMINE
     Dosage: 10 MILLIGRAM, Q3W
     Route: 042
     Dates: start: 201504
  31. METOCLOPRAMIDE. [Concomitant]
     Active Substance: METOCLOPRAMIDE
     Dosage: 0.33 DAY
     Route: 042
     Dates: start: 20170119, end: 20170320
  32. DOCETAXEL. [Suspect]
     Active Substance: DOCETAXEL
     Indication: BREAST CANCER METASTATIC
     Dosage: 150 MILLIGRAM, Q3W,6 CYCLE
     Route: 042
     Dates: start: 20151029, end: 20160216
  33. DEXAMETHASONE. [Concomitant]
     Active Substance: DEXAMETHASONE
     Dosage: 6.6 MILLIGRAM, Q3W
     Route: 042
     Dates: start: 20151029
  34. DEXAMETHASONE. [Concomitant]
     Active Substance: DEXAMETHASONE
     Dosage: TWICE DALY FOR 3 DAYS PRE CHEMO
     Route: 048
     Dates: start: 20151028, end: 20160216
  35. DEXAMETHASONE. [Concomitant]
     Active Substance: DEXAMETHASONE
     Dosage: UNK
  36. PROCHLORPERAZINE MALEATE. [Concomitant]
     Active Substance: PROCHLORPERAZINE MALEATE
     Dosage: 6 MILLIGRAM
     Route: 060
     Dates: start: 20170114, end: 20170118
  37. EXEMESTANE. [Concomitant]
     Active Substance: EXEMESTANE
     Dosage: 25 MILLIGRAM, QD
     Route: 048
     Dates: start: 201605
  38. TRASTUZUMAB. [Suspect]
     Active Substance: TRASTUZUMAB
     Indication: BREAST CANCER METASTATIC
     Dosage: 600 MILLIGRAM, Q3W
     Route: 058
     Dates: start: 20151029
  39. DEXAMETHASONE. [Concomitant]
     Active Substance: DEXAMETHASONE
     Dosage: 8 MILLIGRAM
     Route: 048
     Dates: start: 20150414, end: 20150708
  40. DEXAMETHASONE. [Concomitant]
     Active Substance: DEXAMETHASONE
     Dosage: 4 MILLIGRAM, QD
     Route: 048
     Dates: start: 201606, end: 20160918
  41. ONDANSETRON [Concomitant]
     Active Substance: ONDANSETRON
     Dosage: TWICE DAILY FOR 1 DAY POST CHEMO
     Route: 048
  42. ATORVASTATIN [Concomitant]
     Active Substance: ATORVASTATIN
     Dosage: 60 MILLIGRAM, QD
     Route: 048
     Dates: start: 2001
  43. PARACETAMOL [Concomitant]
     Active Substance: ACETAMINOPHEN
     Dosage: SOLUTION
     Route: 042
     Dates: start: 20170114, end: 20170114
  44. DOCETAXEL. [Suspect]
     Active Substance: DOCETAXEL
     Indication: HER2 POSITIVE BREAST CANCER
     Dosage: 140 MILLIGRAM, Q3W
     Route: 042
     Dates: start: 20150326
  45. ASPIRIN                            /00002701/ [Concomitant]
     Active Substance: ASPIRIN
     Dosage: 75 MILLIGRAM, QD
     Route: 048
     Dates: start: 2001
  46. DEXAMETHASONE. [Concomitant]
     Active Substance: DEXAMETHASONE
     Dosage: 2 MILLIGRAM
     Route: 048
     Dates: start: 20150815, end: 20150828
  47. NOZINAN                            /00038601/ [Concomitant]
     Active Substance: LEVOMEPROMAZINE
     Indication: NAUSEA
     Dosage: 6.25 MILLIGRAM
     Route: 058
     Dates: start: 20170123, end: 20170319
  48. HEPARIN [Concomitant]
     Active Substance: HEPARIN SODIUM
     Dosage: 18000 UNITS
     Route: 058
     Dates: start: 20151224
  49. CHLORPHENAMINE [Concomitant]
     Active Substance: CHLORPHENIRAMINE MALEATE
     Dosage: 10 MILLIGRAM, Q3W
     Route: 042
     Dates: start: 20151029
  50. THIAMINE. [Concomitant]
     Active Substance: THIAMINE
     Dosage: 100 MILLIGRAM, QD
     Route: 048
     Dates: start: 20170320
  51. DEXAMETHASONE. [Concomitant]
     Active Substance: DEXAMETHASONE
     Dosage: 4 MILLIGRAM, QD
     Route: 048
     Dates: start: 20160918, end: 20170114

REACTIONS (16)
  - Oesophagitis [Recovered/Resolved]
  - Dehydration [Recovered/Resolved]
  - Abdominal pain [Recovered/Resolved]
  - Vomiting [Recovered/Resolved]
  - Body temperature increased [Recovered/Resolved]
  - Febrile neutropenia [Recovered/Resolved]
  - Nausea [Recovered/Resolved]
  - Constipation [Recovered/Resolved]
  - Melaena [Recovered/Resolved]
  - Neutropenic sepsis [Recovered/Resolved]
  - Blood potassium decreased [Unknown]
  - Dizziness [Not Recovered/Not Resolved]
  - Diarrhoea [Recovered/Resolved]
  - Neutropenia [Recovered/Resolved]
  - Lower respiratory tract infection [Recovered/Resolved]
  - Pain [Recovered/Resolved]

NARRATIVE: CASE EVENT DATE: 20150513
